FAERS Safety Report 13398326 (Version 2)
Quarter: 2017Q2

REPORT INFORMATION
  Report Type: Spontaneous
  Country: US (occurrence: US)
  Receive Date: 20170403
  Receipt Date: 20170626
  Transmission Date: 20170830
  Serious: Yes (Hospitalization)
  Sender: FDA-Public Use
  Company Number: US-MALLINCKRODT-T201700503

PATIENT
  Sex: Female

DRUGS (13)
  1. GABLOFEN [Suspect]
     Active Substance: BACLOFEN
     Indication: CEREBRAL PALSY
  2. VALIUM [Concomitant]
     Active Substance: DIAZEPAM
  3. MIRALAX [Concomitant]
     Active Substance: POLYETHYLENE GLYCOL 3350
  4. GABLOFEN [Suspect]
     Active Substance: BACLOFEN
     Indication: MUSCLE SPASTICITY
     Dosage: 499.4 ?G, QD
     Route: 037
  5. LIORESAL [Suspect]
     Active Substance: BACLOFEN
     Indication: PRODUCT USED FOR UNKNOWN INDICATION
     Dosage: 600.2 ?G, QD
  6. COLACE [Concomitant]
     Active Substance: DOCUSATE SODIUM
  7. ROZEREM [Concomitant]
     Active Substance: RAMELTEON
  8. LIORESAL [Suspect]
     Active Substance: BACLOFEN
     Dosage: 400 ?G, QD
  9. LIORESAL [Suspect]
     Active Substance: BACLOFEN
     Dosage: 574.3 ?G, QD
     Route: 037
  10. LIORESAL [Suspect]
     Active Substance: BACLOFEN
     Dosage: 449.7 ?G, QD
     Route: 037
  11. BACLOFEN. [Concomitant]
     Active Substance: BACLOFEN
     Route: 048
  12. AMITIZA [Concomitant]
     Active Substance: LUBIPROSTONE
  13. THYROID THERAPY [Concomitant]
     Active Substance: UNSPECIFIED INGREDIENT

REACTIONS (17)
  - Confusional state [Unknown]
  - Pyrexia [Unknown]
  - Eye disorder [Not Recovered/Not Resolved]
  - Dyskinesia [Not Recovered/Not Resolved]
  - Insomnia [Unknown]
  - Soliloquy [Not Recovered/Not Resolved]
  - Thyroid disorder [Not Recovered/Not Resolved]
  - Tremor [Unknown]
  - Hypotonia [Unknown]
  - Weight decreased [Not Recovered/Not Resolved]
  - Withdrawal syndrome [Recovering/Resolving]
  - Decreased appetite [Unknown]
  - Agitation [Unknown]
  - Hallucination [Unknown]
  - Hyperhidrosis [Unknown]
  - Muscle spasticity [Unknown]
  - Speech disorder [Not Recovered/Not Resolved]
